FAERS Safety Report 5258369-4 (Version None)
Quarter: 2007Q1

REPORT INFORMATION
  Report Type: 
  Country: None (occurrence: None)
  Receive Date: 20061117
  Receipt Date: 20060908
  Transmission Date: 20070707
  Serious: Yes (Death, Other)
  Sender: FDA-Public Use
  Company Number: US-JNJFOC-20060306391

PATIENT
  Age: 65 Year
  Sex: Male

DRUGS (5)
  1. LEVAQUIN [Suspect]
     Indication: KIDNEY INFECTION
     Dosage: 500 MG, 1 IN 1 DAY, ORAL
     Route: 048
     Dates: start: 20060317, end: 20060320
  2. LISINOPRIL [Concomitant]
  3. ELMIRON (CAPSULES) PENTOSAN POLYSULFATE SODIUM [Concomitant]
  4. AMBIEN [Concomitant]
  5. ROCEPHIN [Concomitant]

REACTIONS (5)
  - DYSPNOEA [None]
  - HEADACHE [None]
  - NIGHTMARE [None]
  - OXYGEN SATURATION DECREASED [None]
  - TENDON DISORDER [None]
